FAERS Safety Report 24424321 (Version 1)
Quarter: 2024Q4

REPORT INFORMATION
  Report Type: Spontaneous
  Country: IL (occurrence: IL)
  Receive Date: 20241010
  Receipt Date: 20241010
  Transmission Date: 20250115
  Serious: Yes (Other)
  Sender: VERITY PHARMACEUTICALS
  Company Number: IL-VER-202400001

PATIENT
  Age: 6 Year
  Sex: Female

DRUGS (2)
  1. TRIPTORELIN [Suspect]
     Active Substance: TRIPTORELIN
     Indication: Precocious puberty
     Dosage: (11.25 MILLIGRAM(S), IN 3 MONTH)
     Route: 065
  2. TRIPTORELIN [Suspect]
     Active Substance: TRIPTORELIN
     Indication: Precocious puberty
     Dosage: (3.75 MILLIGRAM(S), IN 1 MONTH)
     Route: 065

REACTIONS (1)
  - Optic nerve compression [Recovered/Resolved]
